FAERS Safety Report 9257295 (Version 2)
Quarter: 2013Q2

REPORT INFORMATION
  Report Type: Report from Study
  Country: MX (occurrence: MX)
  Receive Date: 20130426
  Receipt Date: 20130520
  Transmission Date: 20140414
  Serious: Yes (Death, Other)
  Sender: FDA-Public Use
  Company Number: PHHY2013MX040552

PATIENT
  Age: 74 Year
  Sex: Female

DRUGS (4)
  1. CO-DIOVAN [Suspect]
     Indication: HYPERTENSION
     Dosage: 1 DF, (160MG VALS / 12.5 MG HCTZ) QD
     Route: 048
     Dates: start: 201207
  2. SOMAZINA [Concomitant]
     Indication: DYSPNOEA
     Dosage: 2 DF DAILY
     Dates: start: 201303
  3. SOMAZINA [Concomitant]
     Indication: PHARYNGEAL OEDEMA
  4. CLOPIDOGREL [Concomitant]
     Indication: BRAIN OEDEMA
     Dosage: 1 DF, DAILY
     Dates: start: 201303

REACTIONS (6)
  - Respiratory failure [Fatal]
  - Dementia Alzheimer^s type [Not Recovered/Not Resolved]
  - Cerebrovascular accident [Recovered/Resolved with Sequelae]
  - Speech disorder [Not Recovered/Not Resolved]
  - Anaemia [Not Recovered/Not Resolved]
  - Blood pressure increased [Unknown]
